FAERS Safety Report 4561604-9 (Version None)
Quarter: 2005Q1

REPORT INFORMATION
  Report Type: 
  Country: None (occurrence: None)
  Receive Date: 20050126
  Receipt Date: 20050118
  Transmission Date: 20050727
  Serious: Yes (Other)
  Sender: FDA-Public Use
  Company Number: US-GLAXOSMITHKLINE-A0541103A

PATIENT
  Sex: Female

DRUGS (4)
  1. WELLBUTRIN [Suspect]
     Indication: DEPRESSION
     Dosage: 150MG PER DAY
     Route: 048
     Dates: end: 20041201
  2. SYNTHROID [Concomitant]
  3. PREMARIN [Concomitant]
  4. KLONOPIN [Concomitant]

REACTIONS (5)
  - AGGRESSION [None]
  - ANGER [None]
  - ANTISOCIAL BEHAVIOUR [None]
  - IRRITABILITY [None]
  - NEGATIVE THOUGHTS [None]
